FAERS Safety Report 17807527 (Version 1)
Quarter: 2020Q2

REPORT INFORMATION
  Report Type: Spontaneous
  Country: US (occurrence: US)
  Receive Date: 20200520
  Receipt Date: 20200520
  Transmission Date: 20200714
  Serious: Yes (Hospitalization, Other)
  Sender: FDA-Public Use
  Company Number: US-APOTEX-2020AP011049

PATIENT
  Age: 44 Year
  Sex: Female

DRUGS (1)
  1. ACETAMINOPHEN. [Suspect]
     Active Substance: ACETAMINOPHEN
     Indication: PRODUCT USED FOR UNKNOWN INDICATION
     Dosage: UNK
     Route: 065

REACTIONS (8)
  - Substance abuse [Unknown]
  - Toxicity to various agents [Unknown]
  - Analgesic drug level increased [Recovering/Resolving]
  - Unresponsive to stimuli [Unknown]
  - Liver injury [Unknown]
  - Anion gap increased [Unknown]
  - Metabolic acidosis [Recovering/Resolving]
  - Overdose [Unknown]
